FAERS Safety Report 4541866-4 (Version None)
Quarter: 2004Q4

REPORT INFORMATION
  Report Type: 
  Country: None (occurrence: None)
  Receive Date: 20041230
  Receipt Date: 20041222
  Transmission Date: 20050328
  Serious: Yes (Death, Other)
  Sender: FDA-Public Use
  Company Number: PHBS2004JP17294

PATIENT
  Age: 54 Year
  Sex: Male

DRUGS (2)
  1. CYCLOSPORINE [Suspect]
     Indication: BONE MARROW TRANSPLANT
     Route: 065
  2. METHOTREXATE [Concomitant]
     Indication: BONE MARROW TRANSPLANT

REACTIONS (2)
  - CYTOMEGALOVIRUS ANTIGEN POSITIVE [None]
  - ENCEPHALITIS [None]
